FAERS Safety Report 6089195-4 (Version None)
Quarter: 2009Q1

REPORT INFORMATION
  Report Type: 
  Country: None (occurrence: None)
  Receive Date: 20090219
  Receipt Date: 20090203
  Transmission Date: 20090719
  Serious: Yes (Other)
  Sender: FDA-Public Use
  Company Number: 8042833

PATIENT
  Age: 49 Year
  Sex: Female

DRUGS (3)
  1. PREDNISOLONE [Suspect]
     Dosage: 5 MG 1/D
  2. CYCLOPHOSPHAMIDE [Suspect]
     Dates: start: 20040101
  3. METHYLPREDNISOLONE 4MG TAB [Suspect]
     Indication: VASCULITIS
     Dates: start: 20040101

REACTIONS (6)
  - ABDOMINAL PAIN [None]
  - DIARRHOEA [None]
  - DRUG INEFFECTIVE [None]
  - GASTROINTESTINAL HAEMORRHAGE [None]
  - HAEMATOCHEZIA [None]
  - HYPOVOLAEMIC SHOCK [None]
